FAERS Safety Report 19372992 (Version 1)
Quarter: 2021Q2

REPORT INFORMATION
  Report Type: Spontaneous
  Country: US (occurrence: US)
  Receive Date: 20210604
  Receipt Date: 20210604
  Transmission Date: 20210717
  Serious: Yes (Hospitalization, Other)
  Sender: FDA-Public Use
  Company Number: US-BAYER-2021-147999

PATIENT
  Age: 72 Year
  Sex: Male
  Weight: 178.4 kg

DRUGS (4)
  1. GLASDEGIB [Concomitant]
     Active Substance: GLASDEGIB
     Indication: ACUTE MYELOID LEUKAEMIA
     Dosage: 100 MG, QD
     Dates: start: 20181231, end: 20190128
  2. BAYER LOW DOSE [Suspect]
     Active Substance: ASPIRIN
     Dosage: UNK
  3. AZACITIDINE. [Concomitant]
     Active Substance: AZACITIDINE
     Indication: ACUTE MYELOID LEUKAEMIA
     Dosage: UNK
     Dates: start: 20181231, end: 20190128
  4. METFORMINE [METFORMIN HYDROCHLORIDE] [Concomitant]
     Active Substance: METFORMIN HYDROCHLORIDE

REACTIONS (1)
  - Acute kidney injury [None]

NARRATIVE: CASE EVENT DATE: 20190128
